FAERS Safety Report 14322656 (Version 1)
Quarter: 2017Q4

REPORT INFORMATION
  Report Type: Spontaneous
  Country: FR (occurrence: FR)
  Receive Date: 20171225
  Receipt Date: 20171225
  Transmission Date: 20180321
  Serious: Yes (Hospitalization)
  Sender: FDA-Public Use
  Company Number: FR-ASTRAZENECA-2017SF29237

PATIENT
  Age: 62 Year
  Sex: Female
  Weight: 84 kg

DRUGS (2)
  1. KOMBOGLYZE [Suspect]
     Active Substance: METFORMIN HYDROCHLORIDE\SAXAGLIPTIN
     Indication: DIABETES MELLITUS
     Route: 048
     Dates: end: 20171201
  2. NOVONORM [Suspect]
     Active Substance: REPAGLINIDE
     Indication: DIABETES MELLITUS
     Dosage: 2.0MG UNKNOWN
     Route: 048
     Dates: start: 201710, end: 20171201

REACTIONS (3)
  - Hypoglycaemia [Not Recovered/Not Resolved]
  - Epilepsy [Not Recovered/Not Resolved]
  - Weight decreased [Not Recovered/Not Resolved]

NARRATIVE: CASE EVENT DATE: 20171201
